FAERS Safety Report 19083928 (Version 8)
Quarter: 2022Q1

REPORT INFORMATION
  Report Type: Report from Study
  Country: US (occurrence: US)
  Receive Date: 20210401
  Receipt Date: 20220224
  Transmission Date: 20220423
  Serious: Yes (Death, Hospitalization, Other)
  Sender: FDA-Public Use
  Company Number: US-NOVARTISPH-NVSC2021US068922

PATIENT
  Age: 67 Year
  Sex: Male

DRUGS (1)
  1. PROMACTA [Suspect]
     Active Substance: ELTROMBOPAG OLAMINE
     Indication: Product used for unknown indication
     Dosage: UNK
     Route: 048

REACTIONS (16)
  - Death [Fatal]
  - Renal failure [Unknown]
  - Pyrexia [Unknown]
  - Kidney infection [Unknown]
  - Cerebrovascular accident [Unknown]
  - Urinary tract infection [Unknown]
  - Constipation [Unknown]
  - Dysphagia [Unknown]
  - Asthenia [Unknown]
  - Eating disorder [Unknown]
  - Infection [Unknown]
  - Weight decreased [Unknown]
  - Abdominal pain [Unknown]
  - Rash [Unknown]
  - Product supply issue [Unknown]
  - Product dose omission issue [Unknown]

NARRATIVE: CASE EVENT DATE: 20220115
